FAERS Safety Report 19449683 (Version 1)
Quarter: 2021Q2

REPORT INFORMATION
  Report Type: Spontaneous
  Country: US (occurrence: US)
  Receive Date: 20210622
  Receipt Date: 20210622
  Transmission Date: 20210717
  Serious: Yes (Life-Threatening, Other)
  Sender: FDA-Public Use
  Company Number: US-PHARMALEX A.R.C.-2112984

PATIENT
  Sex: Male
  Weight: 92 kg

DRUGS (1)
  1. LUMOXITI [Suspect]
     Active Substance: MOXETUMOMAB PASUDOTOX-TDFK
     Indication: HAIRY CELL LEUKAEMIA
     Dates: start: 20200817, end: 20210205

REACTIONS (2)
  - Adenocarcinoma gastric [Not Recovered/Not Resolved]
  - Metastases to skin [Unknown]
